FAERS Safety Report 4348274-X (Version None)
Quarter: 2004Q1

REPORT INFORMATION
  Report Type: 
  Country: None (occurrence: None)
  Receive Date: 20040329
  Receipt Date: 20040223
  Transmission Date: 20041129
  Serious: No
  Sender: FDA-Public Use
  Company Number: USA030844309

PATIENT
  Age: 14 Year
  Sex: Male
  Weight: 36 kg

DRUGS (5)
  1. STRATTERA [Suspect]
     Indication: ATTENTION DEFICIT/HYPERACTIVITY DISORDER
     Dates: start: 20030812, end: 20031201
  2. STRATTERA [Suspect]
     Indication: BIPOLAR DISORDER
     Dates: start: 20030812, end: 20031201
  3. ZYPREXA [Suspect]
     Indication: BIPOLAR DISORDER
     Dosage: 5 MG/DAY
     Dates: end: 20030811
  4. ADDERALL 10 [Concomitant]
  5. FOLIC ACID [Concomitant]

REACTIONS (8)
  - ANGER [None]
  - ANOREXIA [None]
  - EXPRESSIVE LANGUAGE DISORDER [None]
  - EYE ROLLING [None]
  - FATIGUE [None]
  - JUVENILE ARTHRITIS [None]
  - SOMNOLENCE [None]
  - WEIGHT DECREASED [None]
